FAERS Safety Report 23709119 (Version 1)
Quarter: 2024Q2

REPORT INFORMATION
  Report Type: Spontaneous
  Country: AT (occurrence: AT)
  Receive Date: 20240404
  Receipt Date: 20240404
  Transmission Date: 20240717
  Serious: Yes (Other)
  Sender: FDA-Public Use
  Company Number: AT-REGENERON PHARMACEUTICALS, INC.-2024-053947

PATIENT
  Age: 80 Year
  Sex: Male

DRUGS (1)
  1. LIBTAYO [Suspect]
     Active Substance: CEMIPLIMAB-RWLC
     Indication: Squamous cell carcinoma
     Dosage: UNK
     Dates: start: 20221123

REACTIONS (3)
  - Autoimmune lung disease [Unknown]
  - Pruritus [Unknown]
  - Rash [Unknown]
